FAERS Safety Report 5059179-3 (Version None)
Quarter: 2006Q3

REPORT INFORMATION
  Report Type: 
  Country: None (occurrence: None)
  Receive Date: 20060718
  Receipt Date: 20060711
  Transmission Date: 20061208
  Serious: Yes (Hospitalization)
  Sender: FDA-Public Use
  Company Number: 2006BI007884

PATIENT
  Age: 53 Year
  Sex: Male

DRUGS (15)
  1. AVONEX [Suspect]
     Indication: MULTIPLE SCLEROSIS
     Dosage: 30 UG; BIW; IM
     Route: 030
     Dates: start: 20020731
  2. AVONEX [Suspect]
     Indication: MULTIPLE SCLEROSIS
     Dosage: 30 UG; BIW; IM
     Route: 030
  3. BEE VENOM THERAPY [Concomitant]
  4. IBUPROFEN [Concomitant]
  5. HYDROCHLOROTHIAZIDE [Concomitant]
  6. MODAFINIL [Concomitant]
  7. TOLTERODINE [Concomitant]
  8. NAPROXIN [Concomitant]
  9. ARICEPT [Concomitant]
  10. TERAZOSIN HCL [Concomitant]
  11. LOVASTATIN [Concomitant]
  12. ZINC SULFATE [Concomitant]
  13. BACLOFEN [Concomitant]
  14. CLONAZEPAM [Concomitant]
  15. VENLAFAXIN [Concomitant]

REACTIONS (1)
  - EPILEPSY [None]
